FAERS Safety Report 7137780-0 (Version None)
Quarter: 2010Q4

REPORT INFORMATION
  Report Type: 
  Country: None (occurrence: None)
  Receive Date: 20101103
  Receipt Date: 20091110
  Transmission Date: 20110411
  Serious: Yes (Other)
  Sender: FDA-Public Use
  Company Number: US-WYE-H11674109

PATIENT
  Age: 72 Year
  Sex: Male

DRUGS (3)
  1. EFFEXOR XR [Suspect]
     Indication: DEPRESSION
     Dosage: 75 MG 1X PER 1 DAY, ORAL
     Route: 048
     Dates: start: 19930101
  2. ONE-A-DAY (ASCORBIC ACID/CYANOCOBALAMIN/ERGOCALCIFEROL/NICOTINAMIDE/PY [Concomitant]
  3. FISH OIL, HYDROGENATED (FISH OIL, HYDROGENATED) [Concomitant]

REACTIONS (3)
  - DIARRHOEA [None]
  - SUICIDAL IDEATION [None]
  - SUICIDE ATTEMPT [None]
